FAERS Safety Report 9639114 (Version 2)
Quarter: 2013Q4

REPORT INFORMATION
  Report Type: Report from Study
  Country: US (occurrence: US)
  Receive Date: 20131022
  Receipt Date: 20131118
  Transmission Date: 20140711
  Serious: Yes (Other)
  Sender: FDA-Public Use
  Company Number: US-US-EMD SERONO, INC.-7244090

PATIENT
  Age: 52 Year
  Sex: Female
  Weight: 94 kg

DRUGS (4)
  1. REBIF [Suspect]
     Indication: RELAPSING-REMITTING MULTIPLE SCLEROSIS
     Route: 058
     Dates: start: 20130220
  2. AMANTADINE [Suspect]
     Indication: FATIGUE
     Route: 048
     Dates: start: 20130911, end: 20130917
  3. WELLBUTRIN                         /00700501/ [Concomitant]
     Indication: DEPRESSION
     Dosage: 150
     Route: 048
  4. LOSARTAN [Concomitant]
     Indication: HYPERTENSION
     Route: 048

REACTIONS (1)
  - Cellulitis [Recovering/Resolving]
